FAERS Safety Report 21254123 (Version 2)
Quarter: 2022Q3

REPORT INFORMATION
  Report Type: Spontaneous
  Country: US (occurrence: US)
  Receive Date: 20220825
  Receipt Date: 20220913
  Transmission Date: 20221026
  Serious: Yes (Other)
  Sender: FDA-Public Use
  Company Number: US-TEVA-2022-US-2066612

PATIENT
  Age: 8 Week

DRUGS (2)
  1. DOXEPIN [Suspect]
     Active Substance: DOXEPIN
     Indication: Insomnia
     Dosage: 10 MILLIGRAM DAILY;
     Route: 063
  2. DOXEPIN [Suspect]
     Active Substance: DOXEPIN
     Indication: Insomnia
     Dosage: 75 MILLIGRAM DAILY; THREE TIMES EVERY DAY
     Route: 063

REACTIONS (2)
  - Sedation [Recovered/Resolved]
  - Exposure via breast milk [Unknown]
